FAERS Safety Report 7537276-8 (Version None)
Quarter: 2011Q2

REPORT INFORMATION
  Report Type: 
  Country: None (occurrence: None)
  Receive Date: 20110609
  Receipt Date: 20110606
  Transmission Date: 20111010
  Serious: Yes (Other)
  Sender: FDA-Public Use
  Company Number: US-PFIZER INC-2011123418

PATIENT

DRUGS (3)
  1. TIKOSYN [Suspect]
     Dosage: 250 UG, 2X/DAY
  2. TRICOR [Suspect]
     Dosage: UNK
  3. TIKOSYN [Suspect]
     Dosage: 125 UG, 1X/DAY

REACTIONS (2)
  - BLOOD PRESSURE INCREASED [None]
  - HEART RATE IRREGULAR [None]
